FAERS Safety Report 24012857 (Version 1)
Quarter: 2024Q2

REPORT INFORMATION
  Report Type: Spontaneous
  Country: US (occurrence: US)
  Receive Date: 20240626
  Receipt Date: 20240626
  Transmission Date: 20240716
  Serious: Yes (Death, Other)
  Sender: FDA-Public Use
  Company Number: US-AMGEN-USASP2024124472

PATIENT

DRUGS (1)
  1. BLINATUMOMAB [Suspect]
     Active Substance: BLINATUMOMAB
     Indication: B-cell type acute leukaemia
     Dosage: UNK
     Route: 065

REACTIONS (9)
  - Death [Fatal]
  - Interstitial lung disease [Unknown]
  - Engraftment syndrome [Unknown]
  - Human herpesvirus 6 encephalitis [Unknown]
  - Venoocclusive liver disease [Unknown]
  - B-cell type acute leukaemia [Unknown]
  - Encephalopathy [Unknown]
  - Herpes simplex [Unknown]
  - Cystitis viral [Unknown]
